FAERS Safety Report 6512977-9 (Version None)
Quarter: 2009Q4

REPORT INFORMATION
  Report Type: 
  Country: None (occurrence: None)
  Receive Date: 20091222
  Receipt Date: 20091222
  Transmission Date: 20100525
  Serious: Yes (Hospitalization, Other)
  Sender: FDA-Public Use
  Company Number: None

PATIENT
  Sex: Male
  Weight: 77.5651 kg

DRUGS (2)
  1. IXABEPILONE [Suspect]
     Indication: SMALL CELL LUNG CANCER STAGE UNSPECIFIED
     Dosage: 15MG/M2 DAY 1, 6 + 15  IV
     Route: 042
     Dates: start: 20091215, end: 20091215
  2. LAPATINIB [Suspect]
     Dosage: 1000MG DAILY PO
     Route: 048
     Dates: start: 20091215, end: 20091220

REACTIONS (1)
  - METASTASES TO CENTRAL NERVOUS SYSTEM [None]
